FAERS Safety Report 17686901 (Version 2)
Quarter: 2020Q2

REPORT INFORMATION
  Report Type: Report from Study
  Country: None (occurrence: IL)
  Receive Date: 20200421
  Receipt Date: 20200611
  Transmission Date: 20200714
  Serious: Yes (Hospitalization)
  Sender: FDA-Public Use
  Company Number: IL-ABBVIE-20K-082-3370872-00

PATIENT
  Sex: Male

DRUGS (2)
  1. DUODOPA [Suspect]
     Active Substance: CARBIDOPA\LEVODOPA
     Dosage: CURRENT: MD 6.5ML,?CD DOSE 4.6ML/HOUR,?CN DOSE 3ML/HOUR,?EXTRA DOSE 2.2ML
     Route: 050
  2. DUODOPA [Suspect]
     Active Substance: CARBIDOPA\LEVODOPA
     Indication: PARKINSON^S DISEASE
     Route: 050
     Dates: start: 20170318

REACTIONS (3)
  - Postoperative abscess [Recovering/Resolving]
  - On and off phenomenon [Not Recovered/Not Resolved]
  - Cyst [Not Recovered/Not Resolved]
